FAERS Safety Report 17692319 (Version 1)
Quarter: 2020Q2

REPORT INFORMATION
  Report Type: Spontaneous
  Country: US (occurrence: US)
  Receive Date: 20200421
  Receipt Date: 20200421
  Transmission Date: 20200714
  Serious: No
  Sender: FDA-Public Use
  Company Number: None

PATIENT
  Sex: Male

DRUGS (2)
  1. ALOGLIPTIN. [Suspect]
     Active Substance: ALOGLIPTIN
  2. TRADJENTA [Suspect]
     Active Substance: LINAGLIPTIN

REACTIONS (2)
  - Blood glucose increased [None]
  - Feeling jittery [None]
